FAERS Safety Report 12094962 (Version 1)
Quarter: 2016Q1

REPORT INFORMATION
  Report Type: Spontaneous
  Country: SK (occurrence: SK)
  Receive Date: 20160219
  Receipt Date: 20160219
  Transmission Date: 20160526
  Serious: Yes (Other)
  Sender: FDA-Public Use
  Company Number: SK-PERNIX THERAPEUTICS-2015PT000159

PATIENT

DRUGS (1)
  1. CEDAX [Suspect]
     Active Substance: CEFTIBUTEN DIHYDRATE
     Dosage: UNK
     Route: 048

REACTIONS (1)
  - Hypersensitivity [Unknown]
